FAERS Safety Report 20586951 (Version 6)
Quarter: 2023Q1

REPORT INFORMATION
  Report Type: Report from Study
  Country: US (occurrence: US)
  Receive Date: 20220314
  Receipt Date: 20230211
  Transmission Date: 20230418
  Serious: Yes (Other)
  Sender: FDA-Public Use
  Company Number: US-AUROBINDO-AUR-APL-2022-007367

PATIENT
  Sex: Male

DRUGS (14)
  1. BELINOSTAT [Suspect]
     Active Substance: BELINOSTAT
     Indication: Chondrosarcoma
     Dosage: 2100 DOSAGE FORM
     Route: 065
  2. BELINOSTAT [Suspect]
     Active Substance: BELINOSTAT
     Dosage: 10500 DOSAGE FORM
     Route: 065
     Dates: start: 20211011
  3. BELINOSTAT [Suspect]
     Active Substance: BELINOSTAT
     Dosage: 10500 DOSAGE FORM
     Route: 065
     Dates: start: 20211108
  4. BELINOSTAT [Suspect]
     Active Substance: BELINOSTAT
     Dosage: 10500 DOSAGE FORM
     Route: 065
     Dates: start: 20211206
  5. BELINOSTAT [Suspect]
     Active Substance: BELINOSTAT
     Dosage: 10500 DOSAGE FORM
     Route: 065
     Dates: start: 20220103
  6. BELINOSTAT [Suspect]
     Active Substance: BELINOSTAT
     Dosage: 10500 DOSAGE FORM
     Route: 065
     Dates: start: 20220131
  7. BELINOSTAT [Suspect]
     Active Substance: BELINOSTAT
     Dosage: 10500 DOSAGE FORM
     Route: 065
     Dates: start: 20220228
  8. DECITABINE [Suspect]
     Active Substance: DECITABINE
     Indication: Chondrosarcoma
     Dosage: 1 DOSAGE FORM
     Route: 065
  9. DECITABINE [Suspect]
     Active Substance: DECITABINE
     Dosage: 675 DOSAGE FORM
     Route: 065
     Dates: start: 20211011
  10. DECITABINE [Suspect]
     Active Substance: DECITABINE
     Dosage: 675 DOSAGE FORM
     Route: 065
     Dates: start: 20211108
  11. DECITABINE [Suspect]
     Active Substance: DECITABINE
     Dosage: 675 DOSAGE FORM
     Route: 065
     Dates: start: 20211206
  12. DECITABINE [Suspect]
     Active Substance: DECITABINE
     Dosage: 675 DOSAGE FORM
     Route: 065
     Dates: start: 20220103
  13. DECITABINE [Suspect]
     Active Substance: DECITABINE
     Dosage: 675 DOSAGE FORM
     Route: 065
     Dates: start: 20220131
  14. DECITABINE [Suspect]
     Active Substance: DECITABINE
     Dosage: 675 DOSAGE FORM
     Route: 065
     Dates: start: 20220228

REACTIONS (11)
  - Malignant melanoma [Unknown]
  - Lymphocyte count decreased [Unknown]
  - Anaemia [Unknown]
  - Platelet count decreased [Unknown]
  - White blood cell count decreased [Unknown]
  - Cough [Unknown]
  - Memory impairment [Unknown]
  - Back pain [Unknown]
  - Constipation [Unknown]
  - Hyponatraemia [Unknown]
  - Fall [Unknown]

NARRATIVE: CASE EVENT DATE: 20211025
